FAERS Safety Report 7276485-2 (Version None)
Quarter: 2011Q1

REPORT INFORMATION
  Report Type: 
  Country: None (occurrence: None)
  Receive Date: 20110204
  Receipt Date: 20110118
  Transmission Date: 20110831
  Serious: Yes (Hospitalization, Other)
  Sender: FDA-Public Use
  Company Number: US-PFIZER INC-2010162834

PATIENT
  Sex: Male

DRUGS (8)
  1. ENBREL [Suspect]
     Indication: PSORIASIS
     Dosage: 25 MG, 2 TIMES/WK
     Route: 064
     Dates: start: 20030101, end: 20101101
  2. ENBREL [Suspect]
     Dosage: 25 MG, 2 TIMES/WK
     Route: 064
     Dates: start: 20030101
  3. MYCOPHENOLATE MOFETIL [Suspect]
     Dosage: UNK
     Route: 064
     Dates: end: 20100101
  4. METHYLDOPA [Suspect]
     Indication: HYPERTENSION
     Dosage: 250 MG, 3X/DAY
     Route: 064
     Dates: start: 20100101
  5. PRENATAL VITAMINS [Concomitant]
     Route: 064
  6. INFANT FORMULAS [Concomitant]
     Dosage: UNK
  7. NORVASC [Suspect]
     Dosage: UNK
     Route: 064
     Dates: end: 20100101
  8. METHYLDOPA [Suspect]
     Dosage: 250 MG, TID
     Route: 048
     Dates: start: 20100101

REACTIONS (8)
  - DRUG EXPOSURE DURING PREGNANCY [None]
  - DEHYDRATION [None]
  - BACTERAEMIA [None]
  - CAESAREAN SECTION [None]
  - WEIGHT DECREASE NEONATAL [None]
  - JAUNDICE [None]
  - JAUNDICE NEONATAL [None]
  - URINARY TRACT INFECTION [None]
